FAERS Safety Report 10601321 (Version 1)
Quarter: 2014Q4

REPORT INFORMATION
  Report Type: Report from Study
  Country: NL (occurrence: NL)
  Receive Date: 20141124
  Receipt Date: 20141124
  Transmission Date: 20150529
  Serious: Yes (Hospitalization, Other)
  Sender: FDA-Public Use
  Company Number: NL-AMGEN-NLDSL2013094683

PATIENT
  Age: 60 Year
  Sex: Female

DRUGS (1)
  1. NEULASTA [Suspect]
     Active Substance: PEGFILGRASTIM
     Indication: PRODUCT USED FOR UNKNOWN INDICATION
     Dosage: 10 MG/ML, Q3WK
     Route: 065

REACTIONS (8)
  - Pyrexia [Unknown]
  - Bone pain [Unknown]
  - Myalgia [Unknown]
  - Rash macular [Unknown]
  - Eructation [Unknown]
  - Lyme disease [Unknown]
  - Arthropod bite [Unknown]
  - Diarrhoea [Unknown]
